FAERS Safety Report 17513854 (Version 2)
Quarter: 2020Q2

REPORT INFORMATION
  Report Type: Spontaneous
  Country: BR (occurrence: BR)
  Receive Date: 20200306
  Receipt Date: 20200604
  Transmission Date: 20200713
  Serious: Yes (Other)
  Sender: FDA-Public Use
  Company Number: BR-ABBVIE-20P-020-3303087-00

PATIENT
  Sex: Female

DRUGS (11)
  1. LAMOTRIGINE. [Concomitant]
     Active Substance: LAMOTRIGINE
     Route: 048
     Dates: start: 20200220
  2. DEPAKOTE ER [Suspect]
     Active Substance: DIVALPROEX SODIUM
     Route: 048
  3. DEPAKOTE ER [Suspect]
     Active Substance: DIVALPROEX SODIUM
     Dosage: TOOK IT 4 TIMES A DAY AND HAD CRISIS; DAILY DOSE: 4 TABLETS
     Route: 048
  4. PEROLA [Concomitant]
     Indication: MENSTRUAL DISORDER
     Route: 048
  5. DEPAKOTE ER [Suspect]
     Active Substance: DIVALPROEX SODIUM
     Indication: EPILEPSY
     Route: 048
     Dates: start: 20200221, end: 20200223
  6. LAMOTRIGINE. [Concomitant]
     Active Substance: LAMOTRIGINE
  7. DEPAKOTE ER [Suspect]
     Active Substance: DIVALPROEX SODIUM
     Dosage: MORNING/NIGHT; DOSE INCREASED TO TAB 3 A DAY; DAILY DOSE: 2 TABLETS
     Route: 048
     Dates: end: 202002
  8. DIAZEPAM. [Concomitant]
     Active Substance: DIAZEPAM
     Indication: SEIZURE
     Dosage: START DATE: 16 YEARS AGO; TAKES WHENEVER SHE HAS SEQUENTIAL CRISIS; SEE NARRATIVE
     Route: 060
  9. FRISIUM [Concomitant]
     Active Substance: CLOBAZAM
     Indication: EPILEPSY
     Dosage: 1 TABLET AT NIGHT; TAKEN WITH LAMOTRIGINE AND DEPAKOTE;
     Route: 048
  10. DEPAKOTE ER [Suspect]
     Active Substance: DIVALPROEX SODIUM
     Dosage: MORNING/NIGHT; (DOSAGE REDUCED BY HER OWN); DAILY DOSE: 2 TABLETS
     Route: 048
     Dates: start: 20200224
  11. LAMOTRIGINE. [Concomitant]
     Active Substance: LAMOTRIGINE
     Indication: EPILEPSY
     Dosage: 3 TABLETS; 1 TABLET IN THE MORNING AND 2 TABLETS AT NIGHT; DOSE INCREASED
     Route: 048
     Dates: end: 20200220

REACTIONS (21)
  - Petit mal epilepsy [Not Recovered/Not Resolved]
  - Seizure [Unknown]
  - Head injury [Unknown]
  - Staring [Unknown]
  - Dyskinesia [Unknown]
  - Nausea [Recovering/Resolving]
  - Malaise [Recovering/Resolving]
  - Vomiting [Recovering/Resolving]
  - Wrong product administered [Unknown]
  - Visual impairment [Recovering/Resolving]
  - Fall [Unknown]
  - Drug ineffective [Unknown]
  - Off label use [Unknown]
  - Asthenia [Recovering/Resolving]
  - Inappropriate schedule of product administration [Unknown]
  - Stress [Unknown]
  - Hypophagia [Recovering/Resolving]
  - Abdominal pain [Recovering/Resolving]
  - Loss of consciousness [Unknown]
  - Gastrointestinal disorder [Recovering/Resolving]
  - Somnolence [Recovering/Resolving]

NARRATIVE: CASE EVENT DATE: 20200117
